FAERS Safety Report 4617142-8 (Version None)
Quarter: 2005Q1

REPORT INFORMATION
  Report Type: 
  Country: None (occurrence: None)
  Receive Date: 20050323
  Receipt Date: 20050314
  Transmission Date: 20050727
  Serious: Yes (Other)
  Sender: FDA-Public Use
  Company Number: GB-MERCK-0503GBR00130

PATIENT
  Sex: Female

DRUGS (1)
  1. COSOPT [Suspect]
     Indication: GLAUCOMA
     Route: 047
     Dates: start: 20050301, end: 20050301

REACTIONS (2)
  - GINGIVAL BLEEDING [None]
  - THROMBOCYTOPENIA [None]
